FAERS Safety Report 6405951-4 (Version None)
Quarter: 2009Q4

REPORT INFORMATION
  Report Type: 
  Country: None (occurrence: None)
  Receive Date: 20091019
  Receipt Date: 20091008
  Transmission Date: 20100525
  Serious: Yes (Hospitalization, Other)
  Sender: FDA-Public Use
  Company Number: US-ELI_LILLY_AND_COMPANY-US200909005318

PATIENT
  Sex: Female
  Weight: 63.946 kg

DRUGS (5)
  1. FORTEO [Suspect]
     Indication: OSTEOPOROSIS
     Dosage: 20 UG, DAILY (1/D)
     Dates: start: 20090601
  2. COZAAR [Concomitant]
     Dosage: 100 MG, DAILY (1/D)
  3. NITROLINGUAL [Concomitant]
     Dosage: 0.4 MG, UNK
  4. LIDODERM [Concomitant]
     Dosage: 5 %, OTHER
  5. ASPIRIN [Concomitant]
     Dosage: 81 MG, 2/D

REACTIONS (1)
  - ACUTE MYOCARDIAL INFARCTION [None]
